FAERS Safety Report 26207780 (Version 1)
Quarter: 2025Q4

REPORT INFORMATION
  Report Type: Spontaneous
  Country: US (occurrence: None)
  Receive Date: 20251225
  Receipt Date: 20251225
  Transmission Date: 20260117
  Serious: Yes (Life-Threatening, Hospitalization, Disabling, Other)
  Sender: FDA-CTU
  Company Number: None

PATIENT
  Age: 10 Year
  Sex: Female
  Weight: 112.5 kg

DRUGS (1)
  1. HALDOL [Suspect]
     Active Substance: HALOPERIDOL

REACTIONS (11)
  - Bradykinesia [None]
  - Homicidal ideation [None]
  - Drooling [None]
  - Suicidal ideation [None]
  - Brain injury [None]
  - Injury [None]
  - Liver injury [None]
  - Overdose [None]
  - Weight increased [None]
  - Hormone level abnormal [None]
  - Abnormal dreams [None]

NARRATIVE: CASE EVENT DATE: 19850101
